FAERS Safety Report 15901402 (Version 2)
Quarter: 2019Q1

REPORT INFORMATION
  Report Type: Spontaneous
  Country: DE (occurrence: DE)
  Receive Date: 20190201
  Receipt Date: 20190213
  Transmission Date: 20190417
  Serious: Yes (Other)
  Sender: FDA-Public Use
  Company Number: DE-009507513-1810DEU009276

PATIENT
  Age: 52 Year
  Sex: Female
  Weight: 66 kg

DRUGS (2)
  1. IMPLANON [Suspect]
     Active Substance: ETONOGESTREL
     Indication: DERMATITIS ALLERGIC
  2. IMPLANON [Suspect]
     Active Substance: ETONOGESTREL
     Indication: CONTRACEPTION
     Dosage: 68 MG, 1 PER YEAR
     Route: 058
     Dates: start: 20181017, end: 20181023

REACTIONS (8)
  - Ecchymosis [Recovered/Resolved]
  - Hypersensitivity [Recovered/Resolved]
  - Device related infection [Recovered/Resolved]
  - Impaired healing [Recovered/Resolved]
  - Wound dehiscence [Recovered/Resolved]
  - Erythema [Recovered/Resolved]
  - Pruritus allergic [Recovered/Resolved]
  - Product use in unapproved indication [Unknown]

NARRATIVE: CASE EVENT DATE: 20181017
